FAERS Safety Report 12115490 (Version 1)
Quarter: 2016Q1

REPORT INFORMATION
  Report Type: Spontaneous
  Country: DE (occurrence: DE)
  Receive Date: 20160225
  Receipt Date: 20160225
  Transmission Date: 20160526
  Serious: Yes (Other)
  Sender: FDA-Public Use
  Company Number: DE-ROXANE LABORATORIES, INC.-2016-RO-00348RO

PATIENT
  Age: 27 Year
  Sex: Female

DRUGS (2)
  1. VEMURAFENIB [Suspect]
     Active Substance: VEMURAFENIB
     Indication: METASTATIC MALIGNANT MELANOMA
     Route: 065
  2. DEXAMETHASONE TABLETS USP, 1.5 MG [Suspect]
     Active Substance: DEXAMETHASONE
     Indication: METASTATIC MALIGNANT MELANOMA
     Route: 065

REACTIONS (2)
  - Lymphopenia [Unknown]
  - Oropharyngeal candidiasis [Recovered/Resolved]
